FAERS Safety Report 14202329 (Version 11)
Quarter: 2018Q4

REPORT INFORMATION
  Report Type: Report from Study
  Country: US (occurrence: US)
  Receive Date: 20171117
  Receipt Date: 20181115
  Transmission Date: 20190204
  Serious: Yes (Hospitalization)
  Sender: FDA-Public Use
  Company Number: US-ACTELION-A-NJ2017-162344

PATIENT
  Age: 71 Year
  Sex: Female
  Weight: 48.73 kg

DRUGS (5)
  1. VELETRI [Suspect]
     Active Substance: EPOPROSTENOL
     Dosage: 18 NG/KG, PER MIN
     Route: 042
  2. VELETRI [Suspect]
     Active Substance: EPOPROSTENOL
     Indication: PULMONARY ARTERIAL HYPERTENSION
     Dosage: 13 NG/KG, PER MIN
     Route: 042
  3. VELETRI [Suspect]
     Active Substance: EPOPROSTENOL
     Dosage: 12 NG/KG, PER MIN
     Route: 042
  4. VELETRI [Suspect]
     Active Substance: EPOPROSTENOL
     Dosage: 8 NG/KG, PER MIN
     Route: 042
  5. ADCIRCA [Concomitant]
     Active Substance: TADALAFIL

REACTIONS (18)
  - Dyspnoea [Unknown]
  - Transient ischaemic attack [Unknown]
  - Pain in jaw [Recovering/Resolving]
  - Nausea [Unknown]
  - Monoparesis [Unknown]
  - Dysarthria [Unknown]
  - Hemiparesis [Unknown]
  - Sinusitis [Unknown]
  - Dyspnoea exertional [Unknown]
  - Lethargy [Unknown]
  - Asthenia [Recovered/Resolved]
  - Pulmonary arterial hypertension [Unknown]
  - Diarrhoea [Unknown]
  - Anxiety [Unknown]
  - Respiratory tract infection viral [Unknown]
  - Headache [Unknown]
  - Vomiting projectile [Unknown]
  - Fatigue [Unknown]

NARRATIVE: CASE EVENT DATE: 20171107
